FAERS Safety Report 8027401-7 (Version None)
Quarter: 2012Q1

REPORT INFORMATION
  Report Type: 
  Country: None (occurrence: None)
  Receive Date: 20120104
  Receipt Date: 20111219
  Transmission Date: 20120608
  Serious: Yes (Death)
  Sender: FDA-Public Use
  Company Number: DSA_48620_2011

PATIENT
  Age: 31 Year
  Sex: Female

DRUGS (4)
  1. LISINOPRIL [Suspect]
     Indication: INTENTIONAL OVERDOSE
     Dosage: 25 MG 1X, ONCE; NOT THE PRESCRIBED AMOUNT ORAL)
     Route: 048
     Dates: start: 20100101, end: 20100101
  2. AMIODARONE HCL [Suspect]
     Indication: INTENTIONAL OVERDOSE
     Dosage: 2000 MG 1X, ONCE; NOT THE PRESCRIBED AMOUNT ORAL)
     Route: 048
     Dates: start: 20100101, end: 20100101
  3. METOPROLOL SUCCINATE [Suspect]
     Indication: INTENTIONAL OVERDOSE
     Dosage: 500 MG 1X, ONCE; NOT THE PRESCRIBED AMOUNT ORAL)
     Route: 048
     Dates: start: 20100101, end: 20100101
  4. DILTIAZEM HYDROCHLORIDE [Suspect]
     Indication: INTENTIONAL OVERDOSE
     Dosage: (2400 MG 1X, NOT THE PRESCRIBED AMOUNT ORAL)
     Route: 048
     Dates: start: 20100101, end: 20100101

REACTIONS (9)
  - TOXICITY TO VARIOUS AGENTS [None]
  - CARDIAC ARREST [None]
  - NO THERAPEUTIC RESPONSE [None]
  - COMPLETED SUICIDE [None]
  - ASTHENIA [None]
  - HYPOTENSION [None]
  - SOMNOLENCE [None]
  - INTENTIONAL DRUG MISUSE [None]
  - DYSPNOEA [None]
